FAERS Safety Report 11929491 (Version 1)
Quarter: 2016Q1

REPORT INFORMATION
  Report Type: Spontaneous
  Country: US (occurrence: None)
  Receive Date: 20160119
  Receipt Date: 20160119
  Transmission Date: 20160526
  Serious: No
  Sender: FDA-Public Use
  Company Number: None

PATIENT
  Age: 69 Year
  Sex: Female
  Weight: 72.58 kg

DRUGS (1)
  1. MIRALAX [Suspect]
     Active Substance: POLYETHYLENE GLYCOL 3350
     Indication: COLONOSCOPY
     Dates: start: 20160107, end: 20160111

REACTIONS (7)
  - Abdominal pain [None]
  - Vomiting projectile [None]
  - Flatulence [None]
  - Toxicity to various agents [None]
  - Dehydration [None]
  - Diarrhoea [None]
  - Muscle spasms [None]

NARRATIVE: CASE EVENT DATE: 20160112
